FAERS Safety Report 22653651 (Version 1)
Quarter: 2023Q2

REPORT INFORMATION
  Report Type: Spontaneous
  Country: US (occurrence: None)
  Receive Date: 20230629
  Receipt Date: 20230629
  Transmission Date: 20230721
  Serious: Yes (Hospitalization)
  Sender: FDA-Public Use
  Company Number: 2023A148683

PATIENT

DRUGS (1)
  1. SYMBICORT [Suspect]
     Active Substance: BUDESONIDE\FORMOTEROL FUMARATE DIHYDRATE
     Dosage: 160/4.5MCG/INHALATION, UNKNOWN UNKNOWN
     Route: 055

REACTIONS (6)
  - Dyspnoea [Unknown]
  - Product use issue [Unknown]
  - Product dose omission issue [Unknown]
  - Device use issue [Unknown]
  - Device issue [Unknown]
  - Incorrect dose administered by device [Unknown]
